FAERS Safety Report 4704391-3 (Version None)
Quarter: 2005Q2

REPORT INFORMATION
  Report Type: 
  Country: None (occurrence: None)
  Receive Date: 20050630
  Receipt Date: 20011008
  Transmission Date: 20051028
  Serious: Yes (Hospitalization)
  Sender: FDA-Public Use
  Company Number: FR-GLAXOSMITHKLINE-B0122663A

PATIENT
  Age: 1 Day
  Sex: Male
  Weight: 4 kg

DRUGS (7)
  1. ZIDOVUDINE [Suspect]
     Indication: HUMAN IMMUNODEFICIENCY VIRUS TRANSMISSION
     Dosage: 32MG PER DAY
     Route: 048
     Dates: start: 20000518, end: 20000629
  2. NEVIRAPINE OR PLACEBO [Suspect]
     Indication: HUMAN IMMUNODEFICIENCY VIRUS TRANSMISSION
     Route: 048
     Dates: start: 20000521, end: 20000521
  3. COMBIVIR [Suspect]
     Indication: HIV INFECTION
     Dosage: 1TAB TWICE PER DAY
     Route: 048
     Dates: start: 20000313
  4. NELFINAVIR [Suspect]
     Indication: HIV INFECTION
     Dosage: 2250MG PER DAY
     Route: 048
     Dates: start: 20000325
  5. ZIDOVUDINE [Suspect]
     Indication: ANTIVIRAL PROPHYLAXIS
     Route: 042
     Dates: start: 20000518, end: 20000518
  6. NEVIRAPINE OR PLACEBO [Suspect]
     Dosage: 1UNIT PER DAY
     Route: 048
     Dates: start: 20000518, end: 20000518
  7. ECONAZOLE NITRATE [Concomitant]
     Route: 065

REACTIONS (14)
  - BLOOD KETONE BODY INCREASED [None]
  - BLOOD KETONE BODY PRESENT [None]
  - BLOOD LACTIC ACID INCREASED [None]
  - CAESAREAN SECTION [None]
  - COMMUNICATION DISORDER [None]
  - DRUG EXPOSURE DURING PREGNANCY [None]
  - GASTROOESOPHAGEAL REFLUX DISEASE [None]
  - HYPERCHOLESTEROLAEMIA [None]
  - HYPERTRIGLYCERIDAEMIA [None]
  - MACROCYTOSIS [None]
  - METABOLIC DISORDER [None]
  - NEONATAL DISORDER [None]
  - NEUTROPENIA [None]
  - NEUTROPENIA NEONATAL [None]
